FAERS Safety Report 19303562 (Version 2)
Quarter: 2021Q3

REPORT INFORMATION
  Report Type: Spontaneous
  Country: JP (occurrence: JP)
  Receive Date: 20210525
  Receipt Date: 20210830
  Transmission Date: 20211014
  Serious: Yes (Hospitalization)
  Sender: FDA-Public Use
  Company Number: JP-BAYER-2021-144437

PATIENT
  Age: 79 Year
  Sex: Male
  Weight: 62.4 kg

DRUGS (6)
  1. ZACRAS [Concomitant]
     Active Substance: AMLODIPINE BESYLATE\AZILSARTAN
     Indication: HYPERTENSION
     Dosage: DAILY DOSE 1 DF
     Route: 048
     Dates: end: 20210507
  2. NATRIX [Concomitant]
     Active Substance: INDAPAMIDE
     Dosage: DAILY DOSE 1 DF
     Route: 048
     Dates: end: 20210507
  3. NUBEQA [Suspect]
     Active Substance: DAROLUTAMIDE
     Indication: ANTIANDROGEN THERAPY
  4. LEUPLIN [Concomitant]
     Active Substance: LEUPROLIDE ACETATE
     Indication: PROSTATE CANCER
     Dosage: ONCE/12 WEEKS
     Route: 058
     Dates: start: 20160329
  5. NUBEQA [Suspect]
     Active Substance: DAROLUTAMIDE
     Indication: PROSTATE CANCER
     Dosage: 600 MG, BID
     Route: 048
     Dates: start: 20210423, end: 20210506
  6. FEBURIC [Concomitant]
     Active Substance: FEBUXOSTAT
     Indication: HYPERURICAEMIA
     Dosage: DAILY DOSE 1 DF
     Route: 048
     Dates: end: 20210507

REACTIONS (5)
  - Pyrexia [Recovered/Resolved]
  - Rash [Recovered/Resolved]
  - Renal impairment [Unknown]
  - Hepatic function abnormal [Recovered/Resolved]
  - Decreased appetite [Recovered/Resolved]

NARRATIVE: CASE EVENT DATE: 20210504
